FAERS Safety Report 7338480-4 (Version None)
Quarter: 2011Q1

REPORT INFORMATION
  Report Type: 
  Country: None (occurrence: None)
  Receive Date: 20110308
  Receipt Date: 20110225
  Transmission Date: 20110831
  Serious: Yes (Hospitalization, Other)
  Sender: FDA-Public Use
  Company Number: GR-SANOFI-AVENTIS-2011SA012257

PATIENT
  Age: 35 Year
  Sex: Female

DRUGS (3)
  1. SOLOSTAR [Suspect]
     Route: 058
     Dates: start: 20100101, end: 20100101
  2. LANTUS [Suspect]
     Dates: start: 20100101, end: 20100101
  3. TRANXENE [Concomitant]
     Indication: DEPRESSION

REACTIONS (2)
  - HYPOGLYCAEMIC COMA [None]
  - SUICIDE ATTEMPT [None]
